FAERS Safety Report 25369370 (Version 1)
Quarter: 2025Q2

REPORT INFORMATION
  Report Type: Spontaneous
  Country: US (occurrence: US)
  Receive Date: 20250528
  Receipt Date: 20250528
  Transmission Date: 20250717
  Serious: Yes (Other)
  Sender: PURDUE
  Company Number: US-PURDUE PHARMA-USA-2025-0317721

PATIENT
  Sex: Male

DRUGS (4)
  1. HYDROCODONE BITARTRATE [Suspect]
     Active Substance: HYDROCODONE BITARTRATE
     Indication: Pain
     Route: 065
  2. OXYCODONE HYDROCHLORIDE [Suspect]
     Active Substance: OXYCODONE HYDROCHLORIDE
     Indication: Pain
     Route: 065
  3. SUBOXONE [Suspect]
     Active Substance: BUPRENORPHINE HYDROCHLORIDE\NALOXONE HYDROCHLORIDE
     Indication: Detoxification
     Route: 065
     Dates: start: 202001, end: 2020
  4. HERBALS\MITRAGYNINE [Suspect]
     Active Substance: HERBALS\MITRAGYNINE
     Indication: Pain
     Route: 065

REACTIONS (6)
  - Drug dependence [Unknown]
  - Anxiety [Unknown]
  - Hypoaesthesia [Unknown]
  - Chills [Unknown]
  - Hyperhidrosis [Unknown]
  - Inadequate analgesia [Recovered/Resolved]

NARRATIVE: CASE EVENT DATE: 20190101
